FAERS Safety Report 18384059 (Version 1)
Quarter: 2020Q4

REPORT INFORMATION
  Report Type: Spontaneous
  Country: ES (occurrence: ES)
  Receive Date: 20201014
  Receipt Date: 20201014
  Transmission Date: 20210114
  Serious: Yes (Other)
  Sender: FDA-Public Use
  Company Number: ES-SA-2020SA278920

PATIENT

DRUGS (2)
  1. LANTUS [Suspect]
     Active Substance: INSULIN GLARGINE
     Indication: TYPE 1 DIABETES MELLITUS
     Dosage: 10 IU, QD
     Route: 058
  2. APIDRA [Suspect]
     Active Substance: INSULIN GLULISINE
     Indication: TYPE 1 DIABETES MELLITUS
     Dosage: 1.5-IU-3IU-3.5IU, TID
     Route: 058

REACTIONS (6)
  - Blood glucose increased [Unknown]
  - Renal neoplasm [Unknown]
  - Multiple use of single-use product [Unknown]
  - Urinary tract infection bacterial [Unknown]
  - Urinary tract obstruction [Unknown]
  - Dyspepsia [Unknown]

NARRATIVE: CASE EVENT DATE: 2018
